FAERS Safety Report 11589995 (Version 1)
Quarter: 2015Q4

REPORT INFORMATION
  Report Type: Spontaneous
  Country: US (occurrence: US)
  Receive Date: 20151002
  Receipt Date: 20151002
  Transmission Date: 20160304
  Serious: Yes (Hospitalization)
  Sender: FDA-Public Use
  Company Number: US-PFIZER INC-2015315511

PATIENT
  Age: 47 Year
  Sex: Female

DRUGS (2)
  1. BENZOCAINE. [Suspect]
     Active Substance: BENZOCAINE
     Indication: PAIN
     Dosage: 20% BENZOCAINE, EVERY TWO HOURS
  2. BENZOCAINE. [Suspect]
     Active Substance: BENZOCAINE
     Indication: FUNGAL INFECTION

REACTIONS (1)
  - Methaemoglobinaemia [Unknown]
